FAERS Safety Report 11568677 (Version 1)
Quarter: 2015Q3

REPORT INFORMATION
  Report Type: Spontaneous
  Country: US (occurrence: None)
  Receive Date: 20150928
  Receipt Date: 20150928
  Transmission Date: 20151125
  Serious: No
  Sender: FDA-Public Use
  Company Number: None

PATIENT
  Sex: Female

DRUGS (6)
  1. ASPIRIN. [Concomitant]
     Active Substance: ASPIRIN
  2. SPRYCEL [Suspect]
     Active Substance: DASATINIB
     Indication: CHRONIC MYELOID LEUKAEMIA
     Route: 048
     Dates: start: 20150618
  3. CENTRUM [Concomitant]
     Active Substance: VITAMINS
  4. TYLENOL [Concomitant]
     Active Substance: ACETAMINOPHEN
  5. KLONOPIN [Concomitant]
     Active Substance: CLONAZEPAM
  6. TRAZODONE [Concomitant]
     Active Substance: TRAZODONE HYDROCHLORIDE

REACTIONS (4)
  - Hypoaesthesia [None]
  - Headache [None]
  - Drug effect decreased [None]
  - Anxiety [None]
